FAERS Safety Report 5370899-3 (Version None)
Quarter: 2007Q2

REPORT INFORMATION
  Report Type: 
  Country: None (occurrence: None)
  Receive Date: 20070626
  Receipt Date: 20070619
  Transmission Date: 20071010
  Serious: Yes (Other)
  Sender: FDA-Public Use
  Company Number: US-GILEAD-2005-0008867

PATIENT
  Age: 37 Year
  Sex: Female

DRUGS (3)
  1. VIREAD [Suspect]
     Indication: HIV INFECTION
  2. DDI [Concomitant]
     Indication: HIV INFECTION
  3. LPV/RTV [Concomitant]
     Indication: HIV INFECTION

REACTIONS (5)
  - ANGIOEDEMA [None]
  - DYSPNOEA [None]
  - HYPERSENSITIVITY [None]
  - RASH [None]
  - URTICARIA [None]
